FAERS Safety Report 6927192-4 (Version None)
Quarter: 2010Q3

REPORT INFORMATION
  Report Type: 
  Country: None (occurrence: None)
  Receive Date: 20100816
  Receipt Date: 20100810
  Transmission Date: 20110219
  Serious: Yes (Death, Hospitalization, Other)
  Sender: FDA-Public Use
  Company Number: IT-ELI_LILLY_AND_COMPANY-IT201008000910

PATIENT
  Sex: Male

DRUGS (2)
  1. ALIMTA [Suspect]
     Indication: LUNG ADENOCARCINOMA
     Dosage: 500 MG/M3/BODY AREA/CYCLE
     Route: 042
     Dates: start: 20100429, end: 20100701
  2. CISPLATIN [Concomitant]
     Dosage: 75 MG/M3/BODY AREA, UNK
     Route: 042
     Dates: start: 20100429, end: 20100701

REACTIONS (8)
  - GENERAL PHYSICAL HEALTH DETERIORATION [None]
  - HYPOTENSION [None]
  - NAUSEA [None]
  - PANCYTOPENIA [None]
  - PYREXIA [None]
  - RENAL FAILURE [None]
  - SHOCK [None]
  - VOMITING [None]
